FAERS Safety Report 9276063 (Version 2)
Quarter: 2014Q1

REPORT INFORMATION
  Report Type: Spontaneous
  Country: US (occurrence: US)
  Receive Date: 20130507
  Receipt Date: 20140131
  Transmission Date: 20141002
  Serious: Yes (Other)
  Sender: FDA-Public Use
  Company Number: US-JNJFOC-20130500224

PATIENT
  Sex: Female
  Weight: 92.99 kg

DRUGS (7)
  1. DURAGESIC [Suspect]
     Indication: PAIN MANAGEMENT
     Route: 062
     Dates: start: 2005
  2. DURAGESIC [Suspect]
     Indication: PAIN MANAGEMENT
     Route: 062
     Dates: start: 1995
  3. DURAGESIC [Suspect]
     Indication: PAIN MANAGEMENT
     Route: 062
  4. UNSPECIFIED FENTANYL TRANSDERMAL SYSTEM [Suspect]
     Indication: PAIN MANAGEMENT
     Route: 062
     Dates: start: 201303
  5. UNSPECIFIED FENTANYL TRANSDERMAL SYSTEM [Suspect]
     Indication: PAIN MANAGEMENT
     Route: 062
     Dates: end: 201303
  6. MECLIZINE [Concomitant]
     Indication: DIZZINESS
     Route: 048
     Dates: start: 1987
  7. NEURONTIN [Concomitant]
     Indication: DIZZINESS
     Dosage: 3-4 TIMES A DAY
     Route: 048
     Dates: start: 2001

REACTIONS (5)
  - Visual impairment [Not Recovered/Not Resolved]
  - Headache [Not Recovered/Not Resolved]
  - Drug ineffective [Not Recovered/Not Resolved]
  - Paraesthesia [Not Recovered/Not Resolved]
  - Sensory loss [Not Recovered/Not Resolved]
